FAERS Safety Report 13141999 (Version 5)
Quarter: 2018Q2

REPORT INFORMATION
  Report Type: Report from Study
  Country: None (occurrence: US)
  Receive Date: 20170124
  Receipt Date: 20180426
  Transmission Date: 20180711
  Serious: Yes (Hospitalization, Other)
  Sender: FDA-Public Use
  Company Number: US-ABBVIE-17K-163-1842468-00

PATIENT
  Sex: Female
  Weight: 69.92 kg

DRUGS (11)
  1. CETIRIZINE [Concomitant]
     Active Substance: CETIRIZINE HYDROCHLORIDE
     Indication: URTICARIA
  2. HUMIRA [Suspect]
     Active Substance: ADALIMUMAB
     Indication: CROHN^S DISEASE
     Route: 058
     Dates: start: 201601, end: 2016
  3. HUMIRA [Suspect]
     Active Substance: ADALIMUMAB
     Route: 058
     Dates: start: 201610, end: 201611
  4. OMEPRAZOLE. [Concomitant]
     Active Substance: OMEPRAZOLE
     Indication: ABDOMINAL PAIN UPPER
  5. HUMIRA [Suspect]
     Active Substance: ADALIMUMAB
     Route: 058
     Dates: end: 20180410
  6. HUMIRA [Suspect]
     Active Substance: ADALIMUMAB
     Indication: RHEUMATOID ARTHRITIS
     Route: 058
     Dates: start: 201509, end: 201601
  7. HUMIRA [Suspect]
     Active Substance: ADALIMUMAB
     Route: 058
     Dates: start: 2016, end: 201610
  8. LANSOPRAZOLE. [Concomitant]
     Active Substance: LANSOPRAZOLE
     Indication: GASTROOESOPHAGEAL REFLUX DISEASE
  9. AMITRIPTYLINE [Concomitant]
     Active Substance: AMITRIPTYLINE
     Indication: PRODUCT USED FOR UNKNOWN INDICATION
     Route: 065
     Dates: end: 2016
  10. GABAPENTIN. [Concomitant]
     Active Substance: GABAPENTIN
     Indication: GASTRIC DISORDER
  11. REFRESH PRO B [Concomitant]
     Indication: PROBIOTIC THERAPY

REACTIONS (17)
  - Enteritis [Recovered/Resolved]
  - Palpitations [Unknown]
  - Migraine [Not Recovered/Not Resolved]
  - Stoma site infection [Recovered/Resolved]
  - Pyrexia [Recovered/Resolved]
  - Small intestinal stenosis [Recovered/Resolved]
  - Uterine leiomyoma [Unknown]
  - Upper respiratory tract infection [Unknown]
  - Sinusitis [Unknown]
  - Arthralgia [Unknown]
  - Stoma site reaction [Recovered/Resolved]
  - Chills [Recovered/Resolved]
  - Skin infection [Not Recovered/Not Resolved]
  - Carpal tunnel syndrome [Unknown]
  - Clostridium difficile infection [Recovering/Resolving]
  - Gastrointestinal stoma complication [Recovered/Resolved]
  - Arthralgia [Recovered/Resolved]

NARRATIVE: CASE EVENT DATE: 2015
